FAERS Safety Report 7541917-9 (Version None)
Quarter: 2011Q2

REPORT INFORMATION
  Report Type: 
  Country: None (occurrence: None)
  Receive Date: 20110613
  Receipt Date: 20110603
  Transmission Date: 20111010
  Serious: Yes (Other)
  Sender: FDA-Public Use
  Company Number: US-AMGEN-USASP2011025972

PATIENT
  Age: 53 Year
  Sex: Female
  Weight: 47.619 kg

DRUGS (3)
  1. PROLIA [Suspect]
     Indication: OSTEOPOROSIS POSTMENOPAUSAL
     Dosage: 60 MG, Q6MO
     Route: 058
     Dates: start: 20110513, end: 20110513
  2. COZAAR [Concomitant]
  3. PROTONIX [Concomitant]

REACTIONS (1)
  - HYPERTENSION [None]
